FAERS Safety Report 5145113-4 (Version None)
Quarter: 2006Q4

REPORT INFORMATION
  Report Type: 
  Country: None (occurrence: None)
  Receive Date: 20061031
  Receipt Date: 20061013
  Transmission Date: 20070319
  Serious: Yes (Hospitalization)
  Sender: FDA-Public Use
  Company Number: DSA_28847_2006

PATIENT
  Age: 75 Year
  Sex: Female

DRUGS (1)
  1. CARDIZEM [Suspect]
     Indication: TACHYCARDIA
     Dosage: 30 MG TID PO
     Route: 048
     Dates: start: 20060401, end: 20061014

REACTIONS (7)
  - ABDOMINAL DISCOMFORT [None]
  - ANGINA PECTORIS [None]
  - DYSPNOEA [None]
  - FATIGUE [None]
  - FEELING ABNORMAL [None]
  - HEADACHE [None]
  - NASAL CONGESTION [None]
